FAERS Safety Report 9358580 (Version 2)
Quarter: 2013Q3

REPORT INFORMATION
  Report Type: Spontaneous
  Country: DE (occurrence: DE)
  Receive Date: 20130620
  Receipt Date: 20130816
  Transmission Date: 20140515
  Serious: Yes (Hospitalization, Other)
  Sender: FDA-Public Use
  Company Number: DE-AMGEN-DEUSP2013038057

PATIENT
  Age: 81 Year
  Sex: Male

DRUGS (8)
  1. ARANESP [Suspect]
     Indication: RENAL FAILURE CHRONIC
     Dosage: 30 MUG, QWK
     Route: 065
     Dates: start: 20030922
  2. MEDIVITAN [Concomitant]
     Dosage: UNK
     Dates: start: 20120702
  3. VITAMIN C                          /00008001/ [Concomitant]
     Dosage: UNK
     Dates: start: 20121205
  4. FERMED                             /00023550/ [Concomitant]
     Dosage: 100 MG, UNK
     Dates: start: 20110228
  5. ABSEAMED [Concomitant]
     Dosage: 8000 UNK, UNK
     Dates: start: 20110321
  6. FERRLECIT                          /00023541/ [Concomitant]
     Dosage: 40 MG, UNK
     Dates: start: 20030922
  7. EPOETIN ALFA [Concomitant]
     Dosage: 2000 IU, UNK
     Dates: start: 20090209
  8. ERYPO FS [Concomitant]
     Dosage: 1 DF, Q2WK
     Dates: start: 20040122

REACTIONS (22)
  - Therapeutic response decreased [Unknown]
  - Leukoerythroblastosis [Unknown]
  - Haemoglobin decreased [Unknown]
  - Renal atrophy [Unknown]
  - Nephropathy [Unknown]
  - Renal artery stenosis [Unknown]
  - Arteriosclerosis coronary artery [Unknown]
  - Hypertensive heart disease [Unknown]
  - Atrial fibrillation [Unknown]
  - Aortic aneurysm [Unknown]
  - Peripheral arterial occlusive disease [Unknown]
  - Hyperparathyroidism secondary [Unknown]
  - Anti-erythropoietin antibody positive [Unknown]
  - Spinal osteoarthritis [Unknown]
  - Trigeminal neuralgia [Unknown]
  - Glaucoma [Unknown]
  - Gastroenteritis norovirus [Unknown]
  - Leukocytosis [Unknown]
  - Monocyte count increased [Unknown]
  - Cough [Unknown]
  - Pneumonia [Unknown]
  - Hypertension [Unknown]
